FAERS Safety Report 8304680 (Version 2)
Quarter: 2013Q2

REPORT INFORMATION
  Report Type: Spontaneous
  Country: US (occurrence: US)
  Receive Date: 20111221
  Receipt Date: 20130610
  Transmission Date: 20140414
  Serious: Yes (Hospitalization)
  Sender: FDA-Public Use
  Company Number: US-BAYER-2011-119949

PATIENT
  Age: 24 Year
  Sex: Female
  Weight: 46.26 kg

DRUGS (3)
  1. YASMIN [Suspect]
     Dosage: UNK
     Dates: start: 200912, end: 201005
  2. YAZ [Suspect]
     Dosage: UNK
     Dates: start: 200912, end: 201005
  3. EXCEDRIN [CAFFEINE,PARACETAMOL] [Concomitant]
     Indication: MIGRAINE
     Dosage: 2 EVERY 6 HOURS
     Route: 048
     Dates: start: 200912

REACTIONS (2)
  - Cerebrovascular accident [None]
  - Injury [None]
